FAERS Safety Report 19678843 (Version 1)
Quarter: 2021Q3

REPORT INFORMATION
  Report Type: Spontaneous
  Country: US (occurrence: US)
  Receive Date: 20210809
  Receipt Date: 20210809
  Transmission Date: 20211014
  Serious: Yes (Disabling)
  Sender: FDA-Public Use
  Company Number: None

PATIENT
  Age: 44 Year
  Sex: Female
  Weight: 60 kg

DRUGS (10)
  1. MULTIVITAMIN [Concomitant]
     Active Substance: VITAMINS
  2. ASPIRIN. [Concomitant]
     Active Substance: ASPIRIN
  3. MOXIFLOXACIN. [Suspect]
     Active Substance: MOXIFLOXACIN
     Indication: TOOTH EXTRACTION
     Dates: start: 20190617, end: 20190619
  4. I CARNITINE [Concomitant]
  5. IRON [Concomitant]
     Active Substance: IRON
  6. SELENIUM [Concomitant]
     Active Substance: SELENIUM
  7. ZINC. [Concomitant]
     Active Substance: ZINC
  8. ALA [Concomitant]
  9. VIT D [Concomitant]
     Active Substance: VITAMIN D NOS
  10. MITOQ [Concomitant]

REACTIONS (8)
  - Chondropathy [None]
  - Insomnia [None]
  - Depersonalisation/derealisation disorder [None]
  - Leukopenia [None]
  - Multiple chemical sensitivity [None]
  - Lacrimation increased [None]
  - Neuropathy peripheral [None]
  - Aortic dilatation [None]

NARRATIVE: CASE EVENT DATE: 20190614
